FAERS Safety Report 12781570 (Version 1)
Quarter: 2016Q3

REPORT INFORMATION
  Report Type: Spontaneous
  Country: US (occurrence: US)
  Receive Date: 20160926
  Receipt Date: 20160926
  Transmission Date: 20161109
  Serious: No
  Sender: FDA-Public Use
  Company Number: US-ALLERGAN-1648344

PATIENT
  Age: 65 Year
  Sex: Female

DRUGS (1)
  1. CARAFATE [Suspect]
     Active Substance: SUCRALFATE
     Indication: GASTROOESOPHAGEAL REFLUX DISEASE
     Dosage: UNK, UNKNOWN
     Route: 048

REACTIONS (5)
  - Throat irritation [Recovered/Resolved]
  - Foreign body [None]
  - Product physical consistency issue [None]
  - Product quality issue [None]
  - Therapy cessation [None]

NARRATIVE: CASE EVENT DATE: 201601
